FAERS Safety Report 22297352 (Version 1)
Quarter: 2023Q2

REPORT INFORMATION
  Report Type: Report from Study
  Country: CA (occurrence: CA)
  Receive Date: 20230509
  Receipt Date: 20230509
  Transmission Date: 20230721
  Serious: Yes (Other)
  Sender: FDA-Public Use
  Company Number: CA-CELLTRION INC.-2022CA015803

PATIENT

DRUGS (3)
  1. TRUXIMA [Suspect]
     Active Substance: RITUXIMAB-ABBS
     Indication: Acute lymphocytic leukaemia
     Dosage: 754 MG PER DOSE (375MG/M2 ON DAY 1 AND 2 OF HYPERCVAD CYCLES)
  2. METHOTREXATE [Suspect]
     Active Substance: METHOTREXATE
     Indication: Acute lymphocytic leukaemia
     Dosage: 754 MG PER DOSE (375MG/M2 ON DAY 1 AND 8 OF HIGH DOSE)
  3. CYTARABINE [Suspect]
     Active Substance: CYTARABINE
     Indication: Acute lymphocytic leukaemia
     Dosage: 754 MG PER DOSE (375MG/M2 ON DAY 1 AND 8 OF HIGH DOSE)

REACTIONS (2)
  - Acute lymphocytic leukaemia [Unknown]
  - Off label use [Unknown]
